FAERS Safety Report 8188139-9 (Version None)
Quarter: 2012Q1

REPORT INFORMATION
  Report Type: 
  Country: None (occurrence: None)
  Receive Date: 20120306
  Receipt Date: 20120227
  Transmission Date: 20120608
  Serious: Yes (Hospitalization, Disabling)
  Sender: FDA-Public Use
  Company Number: US-BAYER-2011-058393

PATIENT
  Age: 35 Year
  Sex: Female
  Weight: 62.585 kg

DRUGS (12)
  1. UNIPHYL [Concomitant]
     Dosage: 400 MG, UNK
  2. NEXIUM [Concomitant]
     Dosage: 40 MG, BID
     Dates: start: 20020101
  3. ADVAIR DISKUS 100/50 [Concomitant]
  4. XANAX [Concomitant]
     Dosage: 0.5 MG, PRN
  5. YAZ [Suspect]
     Dosage: UNK
     Dates: start: 20080201, end: 20090101
  6. LACTULOSE [Concomitant]
     Dosage: 10 MG, UNK
  7. SINGULAIR [Concomitant]
     Indication: ASTHMA
     Dosage: UNK
     Dates: start: 20020101
  8. ALBUTEROL [Concomitant]
     Indication: ASTHMA
     Dosage: UNK
     Dates: start: 19800101
  9. MIRALAX [Concomitant]
     Dosage: 17 G, UNK
  10. ZOLOFT [Concomitant]
     Dosage: 100 MG, UNK
  11. LEVOXYL [Concomitant]
     Dosage: 175 MCG/24HR, UNK
     Dates: start: 19950101
  12. XOPENEX [Concomitant]
     Indication: ASTHMA
     Dosage: UNK
     Dates: start: 20060101

REACTIONS (13)
  - GALLBLADDER DISORDER [None]
  - CHOLELITHIASIS [None]
  - ABDOMINAL DISTENSION [None]
  - DIZZINESS [None]
  - GALLBLADDER OBSTRUCTION [None]
  - ANHEDONIA [None]
  - CHOLECYSTITIS CHRONIC [None]
  - PANCREATITIS [None]
  - ANXIETY [None]
  - ABDOMINAL PAIN [None]
  - BACK PAIN [None]
  - PAIN [None]
  - NAUSEA [None]
